FAERS Safety Report 11214014 (Version 1)
Quarter: 2015Q2

REPORT INFORMATION
  Report Type: Spontaneous
  Country: US (occurrence: None)
  Receive Date: 20150622
  Receipt Date: 20150622
  Transmission Date: 20150821
  Serious: No
  Sender: FDA-Public Use
  Company Number: None

PATIENT
  Age: 34 Year
  Sex: Female
  Weight: 79.38 kg

DRUGS (2)
  1. CONTRAVE [Suspect]
     Active Substance: BUPROPION HYDROCHLORIDE\NALTREXONE HYDROCHLORIDE
     Indication: WEIGHT LOSS DIET
     Dosage: DIFFERENT DOSAGE??
     Route: 048
     Dates: start: 20150604, end: 20150611
  2. GOODY POWDER FOR THE HEADACHES [Concomitant]

REACTIONS (3)
  - Headache [None]
  - Head discomfort [None]
  - Ocular discomfort [None]

NARRATIVE: CASE EVENT DATE: 20150608
